FAERS Safety Report 14058100 (Version 2)
Quarter: 2017Q4

REPORT INFORMATION
  Report Type: Spontaneous
  Country: US (occurrence: US)
  Receive Date: 20171006
  Receipt Date: 20171108
  Transmission Date: 20180321
  Serious: Yes (Other)
  Sender: FDA-Public Use
  Company Number: US-009507513-1708USA002941

PATIENT
  Age: 26 Year
  Sex: Female

DRUGS (1)
  1. NEXPLANON [Suspect]
     Active Substance: ETONOGESTREL
     Indication: CONTRACEPTION
     Dosage: 68 MG, UNK
     Route: 023
     Dates: start: 20170427, end: 20170802

REACTIONS (3)
  - Maternal exposure during pregnancy [Unknown]
  - Incorrect route of drug administration [Unknown]
  - Chlamydial infection [Recovered/Resolved]

NARRATIVE: CASE EVENT DATE: 2017
